FAERS Safety Report 19376988 (Version 8)
Quarter: 2023Q2

REPORT INFORMATION
  Report Type: Report from Study
  Country: BR (occurrence: BR)
  Receive Date: 20210605
  Receipt Date: 20230601
  Transmission Date: 20230721
  Serious: Yes (Other)
  Sender: FDA-Public Use
  Company Number: BR-NOVARTISPH-NVSC2021BR089806

PATIENT
  Age: 40 Year
  Sex: Female
  Weight: 66.5 kg

DRUGS (5)
  1. COSENTYX [Suspect]
     Active Substance: SECUKINUMAB
     Indication: Psoriasis
     Dosage: UNK(ATTACK DOSES)
     Route: 065
     Dates: start: 20210323, end: 20210423
  2. COSENTYX [Suspect]
     Active Substance: SECUKINUMAB
     Dosage: 300 MG
     Route: 065
     Dates: start: 20210326
  3. COSENTYX [Suspect]
     Active Substance: SECUKINUMAB
     Dosage: 300 MG, QW (0-1- 2-3- 4 WEEKS)
     Route: 058
     Dates: start: 20210405, end: 202106
  4. METHOTREXATE [Suspect]
     Active Substance: METHOTREXATE
     Indication: Product used for unknown indication
     Dosage: UNK
     Route: 065
  5. CLOBETASOL [Suspect]
     Active Substance: CLOBETASOL
     Indication: Product used for unknown indication
     Dosage: UNK
     Route: 065

REACTIONS (15)
  - Intra-abdominal haematoma [Recovered/Resolved]
  - Uterine infection [Unknown]
  - Injection site haematoma [Recovered/Resolved]
  - Decreased immune responsiveness [Unknown]
  - COVID-19 [Recovered/Resolved]
  - Malaise [Recovering/Resolving]
  - Throat irritation [Recovering/Resolving]
  - Abdominal pain [Unknown]
  - Urinary tract infection [Recovered/Resolved]
  - Wound [Not Recovered/Not Resolved]
  - Psoriasis [Not Recovered/Not Resolved]
  - Skin haemorrhage [Not Recovered/Not Resolved]
  - Skin lesion [Recovered/Resolved with Sequelae]
  - Abdominal pain lower [Recovered/Resolved]
  - Application site bruise [Unknown]

NARRATIVE: CASE EVENT DATE: 20210330
